FAERS Safety Report 13509585 (Version 1)
Quarter: 2017Q2

REPORT INFORMATION
  Report Type: Spontaneous
  Country: US (occurrence: US)
  Receive Date: 20170503
  Receipt Date: 20170503
  Transmission Date: 20170830
  Serious: No
  Sender: FDA-Public Use
  Company Number: US-SA-2017SA041344

PATIENT
  Age: 78 Year
  Sex: Male

DRUGS (12)
  1. LUMIGAN [Concomitant]
     Active Substance: BIMATOPROST
     Dosage: SOL 0.01%
  2. LIVALO [Concomitant]
     Active Substance: PITAVASTATIN CALCIUM
     Dosage: STRENGTH: 1MG
  3. PANTOPRAZOLE SODIUM. [Concomitant]
     Active Substance: PANTOPRAZOLE SODIUM
     Dosage: STRENGTH: 40 MG
  4. ALIROCUMAB PREFILLED PEN [Concomitant]
     Active Substance: ALIROCUMAB
     Indication: TYPE V HYPERLIPIDAEMIA
     Dates: start: 20161020, end: 20170308
  5. OXYBUTYNIN [Concomitant]
     Active Substance: OXYBUTYNIN
     Dosage: STRENGTH: 5 MG
  6. FUROSEMIDE. [Concomitant]
     Active Substance: FUROSEMIDE
     Dosage: STRENGTH: 20MG
  7. DORZOLAMIDE [Concomitant]
     Active Substance: DORZOLAMIDE
     Dosage: SOL 2% OP
  8. PRALUENT [Suspect]
     Active Substance: ALIROCUMAB
     Indication: TYPE V HYPERLIPIDAEMIA
     Dosage: DOSE:150 MILLIGRAM(S)/MILLILITRE
     Route: 065
     Dates: start: 20161020, end: 20170308
  9. CARVEDILOL. [Concomitant]
     Active Substance: CARVEDILOL
     Dosage: STRENGTH: 12.5MG
  10. TROSPIUM CHLORIDE. [Concomitant]
     Active Substance: TROSPIUM CHLORIDE
     Dosage: STRENGTH: 20 MG
  11. AZITHROMYCIN ANHYDROUS. [Concomitant]
     Active Substance: AZITHROMYCIN ANHYDROUS
     Dosage: STRENGTH: 250MG
  12. LISINOPRIL. [Concomitant]
     Active Substance: LISINOPRIL
     Dosage: STRENGTH:40MG

REACTIONS (2)
  - Myalgia [Recovered/Resolved]
  - Arthralgia [Recovered/Resolved]

NARRATIVE: CASE EVENT DATE: 201611
